FAERS Safety Report 5015263-1 (Version None)
Quarter: 2006Q2

REPORT INFORMATION
  Report Type: 
  Country: None (occurrence: None)
  Receive Date: 20060601
  Receipt Date: 20060530
  Transmission Date: 20061013
  Serious: Yes (Death)
  Sender: FDA-Public Use
  Company Number: SG-RB-3386-2006

PATIENT
  Age: 23 Year
  Sex: Male

DRUGS (2)
  1. BUPRENORPHINE HCL [Suspect]
     Indication: DRUG DEPENDENCE
     Dosage: DOSAGE UNKNOWN
     Route: 042
     Dates: end: 20060101
  2. MIDAZOLAM HYDROCHLORIDE [Suspect]
     Indication: DRUG DEPENDENCE
     Dosage: DOSAGE UNKNOWN
     Route: 042
     Dates: end: 20060101

REACTIONS (2)
  - ADVERSE DRUG REACTION [None]
  - DEATH [None]
